FAERS Safety Report 21237455 (Version 1)
Quarter: 2022Q3

REPORT INFORMATION
  Report Type: Spontaneous
  Country: US (occurrence: US)
  Receive Date: 20220822
  Receipt Date: 20220822
  Transmission Date: 20221026
  Serious: No
  Sender: FDA-Public Use
  Company Number: US-SA-SAC20220816001030

PATIENT
  Sex: Female

DRUGS (1)
  1. DUPIXENT [Suspect]
     Active Substance: DUPILUMAB
     Dosage: 300 MG; FREQUENCY: OTHER
     Route: 058

REACTIONS (6)
  - Arthropod bite [Recovering/Resolving]
  - Blister [Recovering/Resolving]
  - Skin discolouration [Recovering/Resolving]
  - Skin fissures [Unknown]
  - Dry skin [Not Recovered/Not Resolved]
  - Skin exfoliation [Unknown]
